FAERS Safety Report 21627273 (Version 1)
Quarter: 2022Q4

REPORT INFORMATION
  Report Type: Spontaneous
  Country: US (occurrence: None)
  Receive Date: 20221121
  Receipt Date: 20221121
  Transmission Date: 20230113
  Serious: Yes (Hospitalization)
  Sender: FDA-Public Use
  Company Number: None

PATIENT
  Age: 73 Year
  Sex: Female
  Weight: 76.88 kg

DRUGS (15)
  1. WELIREG [Suspect]
     Active Substance: BELZUTIFAN
     Indication: Renal cancer
     Dosage: FREQUENCY : DAILY;?
     Route: 048
     Dates: start: 20221103
  2. ACETAMINOPHEN [Concomitant]
  3. ALPRAZOLAM [Concomitant]
  4. ATORVASTATIN [Concomitant]
  5. CYCLOBENZAPRINE [Concomitant]
  6. DAILY-VITE [Concomitant]
  7. FLONASE [Concomitant]
  8. FUROSEMIDE [Concomitant]
  9. LIDODERM [Concomitant]
  10. ONDANSETRON [Concomitant]
  11. OXYCODONE [Concomitant]
  12. PANTOPRAZOLE [Concomitant]
  13. SERTRALINE [Concomitant]
  14. SYNTHROID [Concomitant]
  15. VOLTAREN [Concomitant]

REACTIONS (1)
  - Hospitalisation [None]

NARRATIVE: CASE EVENT DATE: 20221116
